FAERS Safety Report 16811397 (Version 15)
Quarter: 2025Q1

REPORT INFORMATION
  Report Type: Spontaneous
  Country: ES (occurrence: ES)
  Receive Date: 20190916
  Receipt Date: 20250103
  Transmission Date: 20250409
  Serious: Yes (Other)
  Sender: JOHNSON AND JOHNSON
  Company Number: ES-002147023-PHHY2019ES195606

PATIENT
  Age: 41 Year
  Sex: Male

DRUGS (101)
  1. TOPIRAMATE [Suspect]
     Active Substance: TOPIRAMATE
     Indication: Migraine
     Dosage: 25 MG, QD, ABBUSE?THERAPY START AND END DATE: /JUN/2009
     Route: 065
  2. TOPIRAMATE [Suspect]
     Active Substance: TOPIRAMATE
     Route: 065
  3. TOPIRAMATE [Suspect]
     Active Substance: TOPIRAMATE
     Dosage: 25 MG, QD, ABBUSE?THERAPY START AND END DATE: /JUN/2009
     Route: 065
  4. TOPIRAMATE [Suspect]
     Active Substance: TOPIRAMATE
     Route: 065
  5. TOPIRAMATE [Suspect]
     Active Substance: TOPIRAMATE
     Dosage: 25 MG, QD, ABBUSE?THERAPY START AND END DATE: /JUN/2009
     Route: 065
  6. TOPIRAMATE [Suspect]
     Active Substance: TOPIRAMATE
     Route: 065
  7. TOPIRAMATE [Suspect]
     Active Substance: TOPIRAMATE
     Dosage: 25 MG, QD, ABBUSE?THERAPY START AND END DATE: /JUN/2009
     Route: 065
  8. TOPIRAMATE [Suspect]
     Active Substance: TOPIRAMATE
     Route: 065
  9. FLUNARIZINE [Suspect]
     Active Substance: FLUNARIZINE
     Indication: Migraine
     Dosage: DOSE DESCRIPTION : 5 MG, QD
     Route: 065
  10. FLUNARIZINE [Suspect]
     Active Substance: FLUNARIZINE
     Dosage: DOSE DESCRIPTION : 5 MG, QD
     Route: 065
  11. FLUNARIZINE [Suspect]
     Active Substance: FLUNARIZINE
     Dosage: DOSE DESCRIPTION : 5 MG, QD
     Route: 065
  12. FLUNARIZINE [Suspect]
     Active Substance: FLUNARIZINE
     Dosage: DOSE DESCRIPTION : 5 MG, QD
     Route: 065
  13. METAMIZOLE SODIUM [Suspect]
     Active Substance: METAMIZOLE SODIUM
     Indication: Migraine
     Route: 065
  14. METAMIZOLE SODIUM [Suspect]
     Active Substance: METAMIZOLE SODIUM
     Route: 065
  15. METAMIZOLE SODIUM [Suspect]
     Active Substance: METAMIZOLE SODIUM
     Route: 065
  16. METAMIZOLE SODIUM [Suspect]
     Active Substance: METAMIZOLE SODIUM
     Route: 065
  17. METAMIZOLE SODIUM [Suspect]
     Active Substance: METAMIZOLE SODIUM
     Route: 065
  18. IBUPROFEN [Suspect]
     Active Substance: IBUPROFEN
     Indication: Migraine
     Route: 065
  19. IBUPROFEN [Suspect]
     Active Substance: IBUPROFEN
     Route: 065
  20. IBUPROFEN [Suspect]
     Active Substance: IBUPROFEN
     Route: 065
  21. IBUPROFEN [Suspect]
     Active Substance: IBUPROFEN
     Route: 065
  22. DICLOFENAC SODIUM [Suspect]
     Active Substance: DICLOFENAC SODIUM
     Indication: Migraine
     Route: 065
  23. DICLOFENAC SODIUM [Suspect]
     Active Substance: DICLOFENAC SODIUM
     Route: 065
  24. DICLOFENAC SODIUM [Suspect]
     Active Substance: DICLOFENAC SODIUM
     Route: 065
  25. DICLOFENAC SODIUM [Suspect]
     Active Substance: DICLOFENAC SODIUM
     Route: 065
  26. DICLOFENAC SODIUM [Suspect]
     Active Substance: DICLOFENAC SODIUM
     Route: 065
  27. LAMOTRIGINE [Suspect]
     Active Substance: LAMOTRIGINE
     Indication: Migraine
     Dosage: DOSE DESCRIPTION : 50 MG, QD (50 MG,1 IN 1 D)
     Route: 065
  28. LAMOTRIGINE [Suspect]
     Active Substance: LAMOTRIGINE
     Dosage: DOSE DESCRIPTION : 50 MG, QD (50 MG,1 IN 1 D)
     Route: 065
  29. LAMOTRIGINE [Suspect]
     Active Substance: LAMOTRIGINE
     Dosage: DOSE DESCRIPTION : 50 MG, QD (50 MG,1 IN 1 D)
     Route: 065
  30. LAMOTRIGINE [Suspect]
     Active Substance: LAMOTRIGINE
     Dosage: DOSE DESCRIPTION : 50 MG, QD (50 MG,1 IN 1 D)
     Route: 065
  31. LAMOTRIGINE [Suspect]
     Active Substance: LAMOTRIGINE
     Dosage: 50 MG, QD, ABUSE OFF LABEL USE?THERAPY START DATE: /OCT/2011
     Route: 065
  32. AMITRIPTYLINE HYDROCHLORIDE [Suspect]
     Active Substance: AMITRIPTYLINE HYDROCHLORIDE
     Indication: Migraine
     Dosage: DOSE DESCRIPTION : 10 MG, QD
     Route: 065
  33. AMITRIPTYLINE HYDROCHLORIDE [Suspect]
     Active Substance: AMITRIPTYLINE HYDROCHLORIDE
     Dosage: DOSE DESCRIPTION : 10 MG, QD
     Route: 065
  34. AMITRIPTYLINE HYDROCHLORIDE [Suspect]
     Active Substance: AMITRIPTYLINE HYDROCHLORIDE
     Dosage: DOSE DESCRIPTION : 10 MG, QD
     Route: 065
  35. AMITRIPTYLINE HYDROCHLORIDE [Suspect]
     Active Substance: AMITRIPTYLINE HYDROCHLORIDE
     Dosage: 1 DF
  36. AMITRIPTYLINE HYDROCHLORIDE [Suspect]
     Active Substance: AMITRIPTYLINE HYDROCHLORIDE
     Dosage: DOSE DESCRIPTION : 10 MG, QD
     Route: 065
  37. AMITRIPTYLINE HYDROCHLORIDE [Suspect]
     Active Substance: AMITRIPTYLINE HYDROCHLORIDE
     Dosage: DOSE DESCRIPTION : 10 MG, QD
     Route: 065
  38. AMITRIPTYLINE HYDROCHLORIDE [Suspect]
     Active Substance: AMITRIPTYLINE HYDROCHLORIDE
     Dosage: DOSE DESCRIPTION : 10 MG, QD
     Route: 065
  39. AMITRIPTYLINE HYDROCHLORIDE [Suspect]
     Active Substance: AMITRIPTYLINE HYDROCHLORIDE
     Dosage: 1 DF
  40. AMITRIPTYLINE HYDROCHLORIDE [Suspect]
     Active Substance: AMITRIPTYLINE HYDROCHLORIDE
     Dosage: DOSE DESCRIPTION : 10 MG, QD
     Route: 065
  41. AMITRIPTYLINE HYDROCHLORIDE [Suspect]
     Active Substance: AMITRIPTYLINE HYDROCHLORIDE
     Dosage: DOSE DESCRIPTION : 10 MG, QD
     Route: 065
     Dates: start: 201211
  42. AMITRIPTYLINE HYDROCHLORIDE [Suspect]
     Active Substance: AMITRIPTYLINE HYDROCHLORIDE
     Dosage: 10 MG, QD, ABUSE?THERAPY START DATE: /OCT/2011
     Route: 065
  43. BROMAZEPAM [Suspect]
     Active Substance: BROMAZEPAM
     Indication: Migraine
     Dosage: DOSE DESCRIPTION : 3 MG, QD
     Route: 065
  44. BROMAZEPAM [Suspect]
     Active Substance: BROMAZEPAM
     Dosage: DOSE DESCRIPTION : 3 MG, QD
     Route: 065
  45. BROMAZEPAM [Suspect]
     Active Substance: BROMAZEPAM
     Dosage: DOSE DESCRIPTION : 3 MG, QD
     Route: 065
  46. BROMAZEPAM [Suspect]
     Active Substance: BROMAZEPAM
     Dosage: DOSE DESCRIPTION : 3 MG, QD
     Route: 065
  47. AMITRIPTYLINE HYDROCHLORIDE [Suspect]
     Active Substance: AMITRIPTYLINE HYDROCHLORIDE
     Indication: Migraine
     Dosage: DOSE DESCRIPTION : 1 DF, QD
     Route: 065
  48. AMITRIPTYLINE HYDROCHLORIDE [Suspect]
     Active Substance: AMITRIPTYLINE HYDROCHLORIDE
     Dosage: DOSE DESCRIPTION : 1 DF, QD
     Route: 065
  49. AMITRIPTYLINE HYDROCHLORIDE [Suspect]
     Active Substance: AMITRIPTYLINE HYDROCHLORIDE
     Dosage: DOSE DESCRIPTION : 10 MG, QD (10 MG,1 IN 1 D)
     Route: 065
  50. AMITRIPTYLINE HYDROCHLORIDE [Suspect]
     Active Substance: AMITRIPTYLINE HYDROCHLORIDE
     Dosage: DOSE DESCRIPTION : 10 MG, QD
     Route: 065
  51. AMITRIPTYLINE HYDROCHLORIDE [Suspect]
     Active Substance: AMITRIPTYLINE HYDROCHLORIDE
     Dosage: DOSE DESCRIPTION : 10 MG, QD (10 MG,1 IN 1 D)
     Route: 065
  52. AMITRIPTYLINE HYDROCHLORIDE [Suspect]
     Active Substance: AMITRIPTYLINE HYDROCHLORIDE
     Dosage: DOSE DESCRIPTION : 10 MG, QD
     Route: 065
  53. AMITRIPTYLINE HYDROCHLORIDE [Suspect]
     Active Substance: AMITRIPTYLINE HYDROCHLORIDE
     Dosage: DOSE DESCRIPTION : 1 DF, QD
     Route: 065
  54. AMITRIPTYLINE HYDROCHLORIDE [Suspect]
     Active Substance: AMITRIPTYLINE HYDROCHLORIDE
     Dosage: DOSE DESCRIPTION : 10 MG, QD (10 MG,1 IN 1 D)
     Route: 065
  55. AMITRIPTYLINE HYDROCHLORIDE [Suspect]
     Active Substance: AMITRIPTYLINE HYDROCHLORIDE
     Dosage: DOSE DESCRIPTION : 10 MG, QD
     Route: 065
  56. AMITRIPTYLINE HYDROCHLORIDE [Suspect]
     Active Substance: AMITRIPTYLINE HYDROCHLORIDE
     Dosage: DOSE DESCRIPTION : 10 MG, QD (10 MG,1 IN 1 D)
     Route: 065
  57. AMITRIPTYLINE HYDROCHLORIDE [Suspect]
     Active Substance: AMITRIPTYLINE HYDROCHLORIDE
     Dosage: DOSE DESCRIPTION : 1 DF, QD
     Route: 065
     Dates: start: 201211
  58. AMITRIPTYLINE HYDROCHLORIDE [Suspect]
     Active Substance: AMITRIPTYLINE HYDROCHLORIDE
     Dosage: DOSE DESCRIPTION : 10 MG, QD
     Route: 065
  59. PREDNISONE [Suspect]
     Active Substance: PREDNISONE
     Indication: Migraine
     Dosage: DOSE DESCRIPTION : 60 MG, QD (60 MG,1 IN 1 D)
     Route: 065
  60. PREDNISONE [Suspect]
     Active Substance: PREDNISONE
     Dosage: DOSE DESCRIPTION : 60 MG, QD (60 MG,1 IN 1 D)
     Route: 065
  61. PREDNISONE [Suspect]
     Active Substance: PREDNISONE
     Dosage: DOSE DESCRIPTION : 60 MG, QD (60 MG,1 IN 1 D)
     Route: 065
  62. PREDNISONE [Suspect]
     Active Substance: PREDNISONE
     Dosage: DOSE DESCRIPTION : 60 MG, QD (60 MG,1 IN 1 D)
     Route: 065
  63. PREDNISONE [Suspect]
     Active Substance: PREDNISONE
     Dosage: 60 MG, QD (60 MG 1 IN 1 DAY), ABUSE
     Route: 065
  64. PAROXETINE HYDROCHLORIDE [Suspect]
     Active Substance: PAROXETINE HYDROCHLORIDE
     Indication: Migraine
     Route: 065
  65. PAROXETINE HYDROCHLORIDE [Suspect]
     Active Substance: PAROXETINE HYDROCHLORIDE
     Route: 065
  66. PAROXETINE HYDROCHLORIDE [Suspect]
     Active Substance: PAROXETINE HYDROCHLORIDE
     Route: 065
  67. PAROXETINE HYDROCHLORIDE [Suspect]
     Active Substance: PAROXETINE HYDROCHLORIDE
     Route: 065
  68. PAROXETINE HYDROCHLORIDE [Suspect]
     Active Substance: PAROXETINE HYDROCHLORIDE
     Route: 065
  69. ELETRIPTAN HYDROBROMIDE [Suspect]
     Active Substance: ELETRIPTAN HYDROBROMIDE
     Indication: Migraine
     Route: 065
  70. ELETRIPTAN HYDROBROMIDE [Suspect]
     Active Substance: ELETRIPTAN HYDROBROMIDE
     Route: 065
  71. ELETRIPTAN HYDROBROMIDE [Suspect]
     Active Substance: ELETRIPTAN HYDROBROMIDE
     Route: 065
  72. ELETRIPTAN HYDROBROMIDE [Suspect]
     Active Substance: ELETRIPTAN HYDROBROMIDE
     Route: 065
  73. VALPROATE SODIUM [Suspect]
     Active Substance: VALPROATE SODIUM
     Indication: Migraine
     Dosage: DOSE DESCRIPTION : 500 MG, QD
     Route: 065
  74. VALPROATE SODIUM [Suspect]
     Active Substance: VALPROATE SODIUM
     Dosage: DOSE DESCRIPTION : 500 MG, QD
     Route: 065
  75. VALPROATE SODIUM [Suspect]
     Active Substance: VALPROATE SODIUM
     Dosage: DOSE DESCRIPTION : 500 MG, QD
     Route: 065
  76. VALPROATE SODIUM [Suspect]
     Active Substance: VALPROATE SODIUM
     Dosage: DOSE DESCRIPTION : 500 MG, QD
     Route: 065
  77. MAXALT [Suspect]
     Active Substance: RIZATRIPTAN BENZOATE
     Indication: Migraine
     Route: 065
  78. MAXALT [Suspect]
     Active Substance: RIZATRIPTAN BENZOATE
     Route: 065
  79. MAXALT [Suspect]
     Active Substance: RIZATRIPTAN BENZOATE
     Route: 065
  80. MAXALT [Suspect]
     Active Substance: RIZATRIPTAN BENZOATE
     Route: 065
  81. ACETAMINOPHEN\BELLADONNA LEAF\CAFFEINE\ERGOTAMINE TARTRATE [Suspect]
     Active Substance: ACETAMINOPHEN\BELLADONNA LEAF\CAFFEINE\ERGOTAMINE TARTRATE
     Indication: Migraine
     Route: 065
  82. ACETAMINOPHEN\BELLADONNA LEAF\CAFFEINE\ERGOTAMINE TARTRATE [Suspect]
     Active Substance: ACETAMINOPHEN\BELLADONNA LEAF\CAFFEINE\ERGOTAMINE TARTRATE
     Route: 065
  83. ACETAMINOPHEN\BELLADONNA LEAF\CAFFEINE\ERGOTAMINE TARTRATE [Suspect]
     Active Substance: ACETAMINOPHEN\BELLADONNA LEAF\CAFFEINE\ERGOTAMINE TARTRATE
     Route: 065
  84. ACETAMINOPHEN\BELLADONNA LEAF\CAFFEINE\ERGOTAMINE TARTRATE [Suspect]
     Active Substance: ACETAMINOPHEN\BELLADONNA LEAF\CAFFEINE\ERGOTAMINE TARTRATE
     Route: 065
  85. BOTOX [Suspect]
     Active Substance: ONABOTULINUMTOXINA
     Indication: Migraine
     Route: 065
     Dates: end: 201110
  86. BOTOX [Suspect]
     Active Substance: ONABOTULINUMTOXINA
     Route: 065
     Dates: start: 20130307
  87. BOTOX [Suspect]
     Active Substance: ONABOTULINUMTOXINA
     Route: 065
  88. BOTOX [Suspect]
     Active Substance: ONABOTULINUMTOXINA
     Route: 065
  89. BOTOX [Suspect]
     Active Substance: ONABOTULINUMTOXINA
     Route: 065
  90. BOTOX [Suspect]
     Active Substance: ONABOTULINUMTOXINA
     Route: 065
  91. BOTOX [Suspect]
     Active Substance: ONABOTULINUMTOXINA
     Route: 065
  92. BOTOX [Suspect]
     Active Substance: ONABOTULINUMTOXINA
     Route: 065
  93. BOTOX [Suspect]
     Active Substance: ONABOTULINUMTOXINA
     Route: 065
  94. BOTOX [Suspect]
     Active Substance: ONABOTULINUMTOXINA
     Route: 065
  95. BOTOX [Suspect]
     Active Substance: ONABOTULINUMTOXINA
     Route: 065
     Dates: start: 201110, end: 201110
  96. XEOMIN [Suspect]
     Active Substance: INCOBOTULINUMTOXINA
     Indication: Migraine
     Dates: start: 200902, end: 200902
  97. XEOMIN [Suspect]
     Active Substance: INCOBOTULINUMTOXINA
     Dosage: 150 IU, QD
     Dates: start: 20130307
  98. XEOMIN [Suspect]
     Active Substance: INCOBOTULINUMTOXINA
     Dosage: 150 IU, QD, ABUSE?THERAPY START DATE: 07/MAR/2013
     Route: 065
  99. ZOMIG [Suspect]
     Active Substance: ZOLMITRIPTAN
     Indication: Migraine
     Route: 065
  100. ACETAMINOPHEN [Suspect]
     Active Substance: ACETAMINOPHEN
     Indication: Migraine
     Route: 065
  101. ERGOTAMINE [Suspect]
     Active Substance: CAFFEINE\ERGOTAMINE\ERGOTAMINE TARTRATE
     Indication: Migraine
     Route: 065

REACTIONS (7)
  - Paraesthesia [Unknown]
  - Insomnia [Unknown]
  - Therapy partial responder [Unknown]
  - Drug abuse [Unknown]
  - Product use in unapproved indication [Unknown]
  - Off label use [Unknown]
  - Insomnia [Unknown]

NARRATIVE: CASE EVENT DATE: 20090201
